FAERS Safety Report 5313081-8 (Version None)
Quarter: 2007Q2

REPORT INFORMATION
  Report Type: 
  Country: None (occurrence: None)
  Receive Date: 20070430
  Receipt Date: 20070419
  Transmission Date: 20071010
  Serious: Yes (Other)
  Sender: FDA-Public Use
  Company Number: AR-PFIZER INC-2007030400

PATIENT
  Age: 72 Year
  Sex: Male

DRUGS (3)
  1. SUTENT [Suspect]
     Indication: METASTATIC RENAL CELL CARCINOMA
     Dosage: DAILY DOSE:50MG
     Route: 048
  2. INSULIN [Concomitant]
  3. ACETYLSALICYLIC ACID SRT [Concomitant]
     Route: 048

REACTIONS (6)
  - DEPRESSION [None]
  - ERECTILE DYSFUNCTION [None]
  - FALL [None]
  - MOBILITY DECREASED [None]
  - PARAESTHESIA [None]
  - SENSORY LOSS [None]
